FAERS Safety Report 5029211-1 (Version None)
Quarter: 2006Q2

REPORT INFORMATION
  Report Type: 
  Country: None (occurrence: None)
  Receive Date: 20060619
  Receipt Date: 20060612
  Transmission Date: 20061013
  Serious: Yes (Other)
  Sender: FDA-Public Use
  Company Number: FR-AVENTIS-200612122FR

PATIENT
  Age: 40 Year
  Sex: Female

DRUGS (1)
  1. CLOMID [Suspect]
     Indication: OVULATION INDUCTION
     Route: 048
     Dates: start: 20041201, end: 20060601

REACTIONS (3)
  - HEMIANOPIA [None]
  - PAPILLOEDEMA [None]
  - VISION BLURRED [None]
